FAERS Safety Report 14307123 (Version 1)
Quarter: 2017Q4

REPORT INFORMATION
  Report Type: Spontaneous
  Country: US (occurrence: US)
  Receive Date: 20171220
  Receipt Date: 20171220
  Transmission Date: 20180321
  Serious: No
  Sender: FDA-Public Use
  Company Number: US-TEVA-775797ACC

PATIENT
  Sex: Female

DRUGS (2)
  1. METRONIDAZOLE. [Suspect]
     Active Substance: METRONIDAZOLE
     Indication: FOLLICULITIS
     Dates: start: 201706, end: 201706
  2. DOXYCYCLINE HYCLATE. [Suspect]
     Active Substance: DOXYCYCLINE HYCLATE
     Indication: FOLLICULITIS
     Dates: start: 201706, end: 201706

REACTIONS (3)
  - Nausea [Recovering/Resolving]
  - Oesophageal pain [Recovering/Resolving]
  - Abdominal pain upper [Recovering/Resolving]
